FAERS Safety Report 8623447-6 (Version None)
Quarter: 2012Q3

REPORT INFORMATION
  Report Type: 
  Country: None (occurrence: None)
  Receive Date: 20120827
  Receipt Date: 20120815
  Transmission Date: 20120928
  Serious: Yes (Hospitalization, Other)
  Sender: FDA-Public Use
  Company Number: GB-009507513-1208GBR001126

PATIENT

DRUGS (1)
  1. ONCOTICE [Suspect]
     Indication: IMMUNISATION
     Route: 023
     Dates: start: 20120518, end: 20120518

REACTIONS (7)
  - PETECHIAE [None]
  - NEUTROPENIA [None]
  - RESPIRATORY TRACT CONGESTION [None]
  - THROMBOCYTOPENIA [None]
  - RESPIRATORY RATE INCREASED [None]
  - PALLOR [None]
  - TACHYCARDIA [None]
